FAERS Safety Report 10921248 (Version 1)
Quarter: 2015Q1

REPORT INFORMATION
  Report Type: Spontaneous
  Country: CA (occurrence: None)
  Receive Date: 20150312
  Receipt Date: 20150312
  Transmission Date: 20150721
  Serious: Yes (Other)
  Sender: FDA-Public Use
  Company Number: 2015FE00733

PATIENT
  Age: 64 Year
  Sex: Male

DRUGS (3)
  1. DEGARELIX (DEGARELIX) POWDER AND SOLVENT FOR SOLUTION FOR INJECTION [Suspect]
     Active Substance: DEGARELIX
     Indication: PROSTATE CANCER
     Dosage: SINGLE
     Route: 058
     Dates: start: 20150209, end: 20150209
  2. FUROSEMIDE. [Suspect]
     Active Substance: FUROSEMIDE
  3. LACTULOSE. [Concomitant]
     Active Substance: LACTULOSE

REACTIONS (2)
  - Paralysis [None]
  - Injection site pain [None]

NARRATIVE: CASE EVENT DATE: 20150209
